FAERS Safety Report 6416074-2 (Version None)
Quarter: 2009Q4

REPORT INFORMATION
  Report Type: 
  Country: None (occurrence: None)
  Receive Date: 20091027
  Receipt Date: 20091014
  Transmission Date: 20100525
  Serious: Yes (Death, Hospitalization, Other)
  Sender: FDA-Public Use
  Company Number: DK-ELI_LILLY_AND_COMPANY-DK200905002691

PATIENT
  Age: 34 Year
  Sex: Female
  Weight: 82 kg

DRUGS (9)
  1. ZYPREXA [Suspect]
     Indication: PSYCHOTIC DISORDER
     Dosage: 5 MG, AS NEEDED
     Route: 065
     Dates: start: 20080818, end: 20081029
  2. SERDOLECT [Concomitant]
     Indication: SCHIZOPHRENIA, PARANOID TYPE
     Dosage: 4 MG, UNKNOWN
     Route: 048
     Dates: start: 20080808
  3. SERDOLECT [Concomitant]
     Dosage: 8 MG, UNKNOWN
     Route: 048
     Dates: start: 20080801
  4. SERDOLECT [Concomitant]
     Dosage: 16 MG, UNKNOWN
     Route: 048
     Dates: start: 20080801
  5. SERDOLECT [Concomitant]
     Dosage: 24 MG, DAILY (1/D)
     Route: 048
     Dates: start: 20080801
  6. CIPRALEX [Concomitant]
     Indication: DEPRESSIVE SYMPTOM
     Dosage: 10 MG, UNKNOWN
     Route: 065
     Dates: start: 20080811
  7. CIPRALEX [Concomitant]
     Dosage: 20 MG, DAILY (1/D)
     Route: 065
     Dates: start: 20080901
  8. CORODIL [Concomitant]
     Indication: ESSENTIAL HYPERTENSION
     Dosage: 15 MG, DAILY (1/D)
     Route: 065
     Dates: start: 20071001
  9. GESTODENE AND ETHINYL ESTRADIOL [Concomitant]
     Indication: CONTRACEPTION
     Dosage: UNK, UNKNOWN
     Route: 065

REACTIONS (4)
  - ARTERIOSCLEROSIS CORONARY ARTERY [None]
  - DEATH [None]
  - ELECTROCARDIOGRAM QT PROLONGED [None]
  - HOSPITALISATION [None]
